FAERS Safety Report 4473776-5 (Version None)
Quarter: 2004Q3

REPORT INFORMATION
  Report Type: 
  Country: None (occurrence: None)
  Receive Date: 20040909
  Receipt Date: 20040602
  Transmission Date: 20050211
  Serious: No
  Sender: FDA-Public Use
  Company Number: A03200401795

PATIENT
  Sex: Male

DRUGS (4)
  1. ELOXATIN [Suspect]
     Indication: COLON CANCER
     Dosage: INTRAVENOUS NOS
     Route: 042
  2. ELOXATIN [Suspect]
     Indication: METASTASES TO LIVER
     Dosage: INTRAVENOUS NOS
     Route: 042
  3. FLUOROURACIL [Concomitant]
  4. LEUCOVORIN [Concomitant]

REACTIONS (1)
  - CONDITION AGGRAVATED [None]
